FAERS Safety Report 9305310 (Version 1)
Quarter: 2013Q2

REPORT INFORMATION
  Report Type: Spontaneous
  Country: US (occurrence: None)
  Receive Date: 20130522
  Receipt Date: 20130522
  Transmission Date: 20140414
  Serious: Yes (Hospitalization)
  Sender: FDA-Public Use
  Company Number: None

PATIENT
  Age: 65 Year
  Sex: Male
  Weight: 59.3 kg

DRUGS (2)
  1. QUETIAPINE [Suspect]
     Route: 048
     Dates: start: 20130103, end: 20130105
  2. LISINOPRIL [Suspect]
     Route: 048
     Dates: start: 20121229, end: 20130105

REACTIONS (1)
  - Hypotension [None]
